FAERS Safety Report 21805066 (Version 1)
Quarter: 2023Q1

REPORT INFORMATION
  Report Type: Spontaneous
  Country: US (occurrence: US)
  Receive Date: 20230102
  Receipt Date: 20230102
  Transmission Date: 20230418
  Serious: Yes (Other)
  Sender: FDA-Public Use
  Company Number: US-drreddys-SPO/USA/22/0158867

PATIENT
  Age: 22 Year
  Sex: Female

DRUGS (1)
  1. ZENATANE [Suspect]
     Active Substance: ISOTRETINOIN
     Indication: Acne
     Dosage: RMA ISSUE DATE: 14 SEPTEMBER 2022 11:35:31 AM; 14 OCTOBER 2022 03:21:18 PM; 16 NOVEMBER 2022 12:01:2

REACTIONS (1)
  - Mental disorder [Unknown]
